FAERS Safety Report 5070963-2 (Version None)
Quarter: 2006Q3

REPORT INFORMATION
  Report Type: 
  Country: None (occurrence: None)
  Receive Date: 20060714
  Receipt Date: 20060425
  Transmission Date: 20061208
  Serious: No
  Sender: FDA-Public Use
  Company Number: 2006SP001820

PATIENT
  Sex: Female

DRUGS (2)
  1. LUNESTA [Suspect]
     Indication: DRUG USE FOR UNKNOWN INDICATION
     Dosage: 3 MG;1X;ORAL
     Route: 048
     Dates: start: 20060424, end: 20060424
  2. AMBIEN [Concomitant]

REACTIONS (1)
  - DYSGEUSIA [None]
